FAERS Safety Report 16809068 (Version 2)
Quarter: 2019Q3

REPORT INFORMATION
  Report Type: Spontaneous
  Country: US (occurrence: US)
  Receive Date: 20190916
  Receipt Date: 20190918
  Transmission Date: 20191005
  Serious: Yes (Hospitalization, Other)
  Sender: FDA-Public Use
  Company Number: US-SA-2019SA253664

PATIENT
  Age: 82 Year
  Sex: Female

DRUGS (2)
  1. LANTUS SOLOSTAR [Suspect]
     Active Substance: INSULIN GLARGINE
     Indication: TYPE 2 DIABETES MELLITUS
     Dosage: 55 UNITS OF LANTUS IN THE AM AND 40 UNITS AT NIGHT U, BID
     Route: 065
  2. LANTUS SOLOSTAR [Suspect]
     Active Substance: INSULIN GLARGINE
     Dosage: 40 U, QD
     Route: 065

REACTIONS (9)
  - Diabetes mellitus inadequate control [Unknown]
  - Inappropriate schedule of product administration [Unknown]
  - Gastric ulcer [Unknown]
  - Pain [Unknown]
  - Spinal fracture [Unknown]
  - Renal disorder [Unknown]
  - Wrong technique in product usage process [Unknown]
  - Glycosylated haemoglobin increased [Unknown]
  - Pancreatic cyst [Unknown]
